FAERS Safety Report 7418814-2 (Version None)
Quarter: 2011Q2

REPORT INFORMATION
  Report Type: 
  Country: None (occurrence: None)
  Receive Date: 20110415
  Receipt Date: 20110401
  Transmission Date: 20111010
  Serious: No
  Sender: FDA-Public Use
  Company Number: US-B.I. PHARMACEUTICALS,INC./RIDGEFIELD-2011-BP-09835BP

PATIENT
  Sex: Male

DRUGS (5)
  1. CLONOPIN [Concomitant]
     Indication: DEPRESSION
     Dosage: 2 MG
     Route: 048
  2. SEROQUEL [Concomitant]
     Indication: DEPRESSION
     Dosage: 800 MG
     Route: 048
  3. EFFEXOR [Concomitant]
     Indication: DEPRESSION
     Route: 048
  4. PRADAXA [Suspect]
     Indication: ATRIAL FIBRILLATION
     Dosage: 300 MG
     Route: 048
     Dates: start: 20110201
  5. LORAZEPAM [Concomitant]
     Indication: DEPRESSION
     Dosage: 45 MG
     Route: 048

REACTIONS (3)
  - FALL [None]
  - CONTUSION [None]
  - LACERATION [None]
